FAERS Safety Report 6983676-4 (Version None)
Quarter: 2010Q3

REPORT INFORMATION
  Report Type: 
  Country: None (occurrence: None)
  Receive Date: 20100914
  Receipt Date: 20081121
  Transmission Date: 20110219
  Serious: No
  Sender: FDA-Public Use
  Company Number: US-WYE-H06955808

PATIENT
  Sex: Male

DRUGS (1)
  1. ADVIL LIQUI-GELS [Suspect]
     Indication: HEADACHE
     Dosage: 1 TO 3 TABLETS TWICE PER DAY EVERY COUPLE OF MONTHS
     Route: 048
     Dates: end: 20080901

REACTIONS (2)
  - DRUG INEFFECTIVE [None]
  - MIGRAINE [None]
